FAERS Safety Report 8449844-X (Version None)
Quarter: 2012Q2

REPORT INFORMATION
  Report Type: 
  Country: None (occurrence: None)
  Receive Date: 20120620
  Receipt Date: 20120606
  Transmission Date: 20120825
  Serious: No
  Sender: FDA-Public Use
  Company Number: US-ELI_LILLY_AND_COMPANY-US201206002297

PATIENT
  Age: 48 Year
  Sex: Female

DRUGS (3)
  1. HYDROCHLOROTHIAZIDE [Concomitant]
  2. CYMBALTA [Suspect]
     Dosage: 60 MG, QOD
     Dates: start: 20110601
  3. CYMBALTA [Suspect]
     Indication: DEPRESSION
     Dosage: 60 MG, QD
     Dates: start: 20040101

REACTIONS (9)
  - ARTHROPATHY [None]
  - DEPRESSION [None]
  - DRUG WITHDRAWAL SYNDROME [None]
  - YELLOW SKIN [None]
  - OCULAR ICTERUS [None]
  - HEADACHE [None]
  - BLOOD PRESSURE INCREASED [None]
  - MUSCULOSKELETAL STIFFNESS [None]
  - JOINT STIFFNESS [None]
